FAERS Safety Report 4510016-2 (Version None)
Quarter: 2004Q4

REPORT INFORMATION
  Report Type: 
  Country: None (occurrence: None)
  Receive Date: 20041124
  Receipt Date: 20041117
  Transmission Date: 20050328
  Serious: Yes (Death)
  Sender: FDA-Public Use
  Company Number: JP-JNJFOC-20040908704

PATIENT
  Sex: Male

DRUGS (4)
  1. LEUSTATIN [Suspect]
     Indication: DIFFUSE LARGE B-CELL LYMPHOMA
  2. ARA-C [Suspect]
     Indication: B-CELL LYMPHOMA
  3. BUSULFAN [Suspect]
     Indication: B-CELL LYMPHOMA
  4. ANTITHYMOCYTE GLOBULIN [Suspect]
     Indication: B-CELL LYMPHOMA

REACTIONS (10)
  - BLOOD DISORDER [None]
  - CONDITION AGGRAVATED [None]
  - DISEASE RECURRENCE [None]
  - GRAFT VERSUS HOST DISEASE [None]
  - LYMPHOMA [None]
  - MELAENA [None]
  - METASTASES TO BONE MARROW [None]
  - METASTASES TO STOMACH [None]
  - NOCARDIOSIS [None]
  - THROMBOCYTOPENIA [None]
